FAERS Safety Report 24837778 (Version 1)
Quarter: 2025Q1

REPORT INFORMATION
  Report Type: Spontaneous
  Country: US (occurrence: US)
  Receive Date: 20250113
  Receipt Date: 20250113
  Transmission Date: 20250408
  Serious: Yes (Death)
  Sender: AMGEN
  Company Number: US-AMGEN-USASP2025002289

PATIENT

DRUGS (2)
  1. PREDNISONE [Suspect]
     Active Substance: PREDNISONE
     Indication: Graft versus host disease
     Route: 065
  2. LETERMOVIR [Concomitant]
     Active Substance: LETERMOVIR
     Indication: Prophylaxis
     Dosage: UNK, QD

REACTIONS (7)
  - Graft versus host disease [Fatal]
  - Aspergillus infection [Fatal]
  - COVID-19 [Fatal]
  - Disease recurrence [Fatal]
  - Acute myeloid leukaemia recurrent [Fatal]
  - Cytomegalovirus infection [Unknown]
  - Off label use [Unknown]
